FAERS Safety Report 6300429-0 (Version None)
Quarter: 2009Q3

REPORT INFORMATION
  Report Type: 
  Country: None (occurrence: None)
  Receive Date: 20090806
  Receipt Date: 20080926
  Transmission Date: 20100115
  Serious: No
  Sender: FDA-Public Use
  Company Number: US-ABBOTT-08P-163-0479002-00

PATIENT
  Sex: Male
  Weight: 116.68 kg

DRUGS (2)
  1. DEPAKOTE ER [Suspect]
     Indication: BIPOLAR DISORDER
     Route: 048
     Dates: start: 20080908
  2. ALPRAZOLAM [Concomitant]
     Indication: ANXIETY
     Route: 048

REACTIONS (4)
  - ABNORMAL BEHAVIOUR [None]
  - MANIA [None]
  - PYREXIA [None]
  - TREMOR [None]
